FAERS Safety Report 7708452-6 (Version None)
Quarter: 2011Q3

REPORT INFORMATION
  Report Type: 
  Country: None (occurrence: None)
  Receive Date: 20110825
  Receipt Date: 20110815
  Transmission Date: 20111222
  Serious: Yes (Hospitalization, Other)
  Sender: FDA-Public Use
  Company Number: US-BAYER-201034666NA

PATIENT
  Age: 26 Year
  Weight: 84.807 kg

DRUGS (8)
  1. DROSPIRENONE AND ETHINYL ESTRADIOL [Suspect]
     Dosage: UNK
     Dates: start: 20071201
  2. IBUPROFEN [Concomitant]
     Indication: MUSCLE SPASMS
     Dosage: 200 MG, UNK
  3. PAXIL [Concomitant]
  4. ACETAMINOPHEN [Concomitant]
     Indication: HEADACHE
     Dosage: 500 MG, UNK
  5. PHENTERMINE [Concomitant]
     Indication: WEIGHT DECREASED
     Dosage: UNK
     Dates: start: 20071201
  6. CLONAZEPAM [Concomitant]
     Indication: RESTLESS LEGS SYNDROME
     Dosage: UNK
     Dates: start: 20080601
  7. YASMIN [Suspect]
     Dosage: UNK
     Dates: start: 20080101
  8. PROZAC [Concomitant]
     Indication: DEPRESSION
     Dosage: UNK
     Dates: start: 20071201, end: 20100801

REACTIONS (4)
  - CHOLECYSTITIS CHRONIC [None]
  - CHOLELITHIASIS [None]
  - PANCREATITIS [None]
  - PAIN [None]
